FAERS Safety Report 9169858 (Version 2)
Quarter: 2014Q2

REPORT INFORMATION
  Report Type: Spontaneous
  Country: JP (occurrence: JP)
  Receive Date: 20130319
  Receipt Date: 20140529
  Transmission Date: 20141212
  Serious: Yes (Life-Threatening, Hospitalization, Disabling, Other)
  Sender: FDA-Public Use
  Company Number: JP-009507513-1209JPN003189

PATIENT
  Age: 11 Year
  Sex: Male
  Weight: 51 kg

DRUGS (4)
  1. ESLAX [Suspect]
     Indication: NEUROMUSCULAR BLOCKING THERAPY
     Dosage: 0.6 MG/KG, UNK
     Route: 051
     Dates: start: 20120822, end: 2012
  2. ULTIVA [Suspect]
     Indication: ANALGESIC THERAPY
     Dosage: 0.5 MICROGRAM PER KILOGRAM PER MIN
     Route: 042
     Dates: start: 20120822, end: 20120822
  3. ATROPINE [Concomitant]
     Indication: PREMEDICATION
     Dosage: .3 MG, UNK
     Route: 042
  4. GASTER [Concomitant]
     Indication: PREMEDICATION
     Dosage: 20 MG, UNK
     Route: 042

REACTIONS (6)
  - Bronchostenosis [Recovered/Resolved]
  - Hypoventilation [Recovered/Resolved]
  - Hypoxia [Recovered/Resolved]
  - Periorbital oedema [Recovered/Resolved]
  - Anaphylactic shock [Recovered/Resolved]
  - Hypotension [Recovered/Resolved]
